FAERS Safety Report 23485447 (Version 3)
Quarter: 2024Q3

REPORT INFORMATION
  Report Type: Spontaneous
  Country: US (occurrence: US)
  Receive Date: 20240206
  Receipt Date: 20240821
  Transmission Date: 20241016
  Serious: No
  Sender: SANOFI AVENTIS
  Company Number: US-SA-SAC20240130000625

PATIENT
  Sex: Male

DRUGS (19)
  1. DUPIXENT [Suspect]
     Active Substance: DUPILUMAB
     Indication: Dermatitis atopic
     Dosage: 300 MG, QOW
     Route: 058
  2. IRON [Concomitant]
     Active Substance: IRON
     Dosage: 325
  3. IRON [Concomitant]
     Active Substance: IRON
     Dosage: IRON TAB 325 (65 MG,MULTIVITAMIN TAB ,
  4. OMEPRAZOLE [Concomitant]
     Active Substance: OMEPRAZOLE
  5. OMEPRAZOLE [Concomitant]
     Active Substance: OMEPRAZOLE
  6. VITAMINS NOS [Concomitant]
     Active Substance: VITAMINS
  7. VITAMIN D3 [Concomitant]
     Active Substance: CHOLECALCIFEROL
  8. VITAMIN D3 [Concomitant]
     Active Substance: CHOLECALCIFEROL
  9. APRODINE [Concomitant]
     Active Substance: PSEUDOEPHEDRINE HYDROCHLORIDE\TRIPROLIDINE HYDROCHLORIDE
  10. APRODINE [Concomitant]
     Active Substance: PSEUDOEPHEDRINE HYDROCHLORIDE\TRIPROLIDINE HYDROCHLORIDE
     Dosage: APRODINE TAB 2.5-60MG
  11. FINASTERIDE [Concomitant]
     Active Substance: FINASTERIDE
  12. FINASTERIDE [Concomitant]
     Active Substance: FINASTERIDE
  13. VITAMIN B COMPLEX [Concomitant]
     Active Substance: CYANOCOBALAMIN\DEXPANTHENOL\NIACINAMIDE\PYRIDOXINE HYDROCHLORIDE\RIBOFLAVIN 5^-PHOSPHATE SODIUM\THIA
  14. VITAMIN B COMPLEX [Concomitant]
     Active Substance: CYANOCOBALAMIN\DEXPANTHENOL\NIACINAMIDE\PYRIDOXINE HYDROCHLORIDE\RIBOFLAVIN 5^-PHOSPHATE SODIUM\THIA
  15. CITRACAL + D3 [Concomitant]
     Dosage: 250-107
  16. CITRACAL + D3 [Concomitant]
     Dosage: CITRACAL +D3 CHE 250-107
  17. TRIAMCINOLONE [Concomitant]
     Active Substance: TRIAMCINOLONE
  18. ASCORBIC ACID [Concomitant]
     Active Substance: ASCORBIC ACID
  19. VITAMIN C [Concomitant]
     Active Substance: ASCORBIC ACID

REACTIONS (6)
  - Skin haemorrhage [Unknown]
  - Scratch [Not Recovered/Not Resolved]
  - Sleep disorder [Unknown]
  - Skin exfoliation [Unknown]
  - Pruritus [Unknown]
  - Inappropriate schedule of product administration [Unknown]
